FAERS Safety Report 17878192 (Version 1)
Quarter: 2020Q2

REPORT INFORMATION
  Report Type: Spontaneous
  Country: NL (occurrence: NL)
  Receive Date: 20200609
  Receipt Date: 20200609
  Transmission Date: 20200714
  Serious: Yes (Other)
  Sender: FDA-Public Use
  Company Number: NL-SAMSUNG BIOEPIS-SB-2020-18521

PATIENT
  Age: 44 Year
  Sex: Male
  Weight: 81 kg

DRUGS (2)
  1. BENEPALI [Suspect]
     Active Substance: ETANERCEPT
     Indication: SPONDYLITIS
     Dosage: INJECTION FLUID, BENEPALI INJECTION VLST 50 MILLIGRAM/MILLILITRE PEN ONE MILLILITRE
     Route: 065
     Dates: start: 20180801, end: 20181106
  2. ARCOXIA [Concomitant]
     Active Substance: ETORICOXIB
     Indication: PRODUCT USED FOR UNKNOWN INDICATION
     Dosage: UNKNOWN, FILM COATED TABLET
     Route: 065

REACTIONS (4)
  - Optic atrophy [Not Recovered/Not Resolved]
  - Product use in unapproved indication [Unknown]
  - Visual acuity reduced [Recovering/Resolving]
  - Intraocular pressure increased [Unknown]

NARRATIVE: CASE EVENT DATE: 20181103
